FAERS Safety Report 10654587 (Version 1)
Quarter: 2014Q4

REPORT INFORMATION
  Report Type: Spontaneous
  Country: US (occurrence: US)
  Receive Date: 20141216
  Receipt Date: 20141216
  Transmission Date: 20150529
  Serious: No
  Sender: FDA-Public Use
  Company Number: US-ELI_LILLY_AND_COMPANY-US201412000938

PATIENT
  Sex: Female

DRUGS (1)
  1. HUMALOG [Suspect]
     Active Substance: INSULIN LISPRO
     Indication: PRODUCT USED FOR UNKNOWN INDICATION
     Dosage: 10 U, QD
     Route: 065
     Dates: start: 2012

REACTIONS (4)
  - Rash [Unknown]
  - Urticaria [Unknown]
  - Blood glucose increased [Unknown]
  - Incorrect product storage [Unknown]
